FAERS Safety Report 24918912 (Version 1)
Quarter: 2025Q1

REPORT INFORMATION
  Report Type: Spontaneous
  Country: US (occurrence: US)
  Receive Date: 20250204
  Receipt Date: 20250204
  Transmission Date: 20250408
  Serious: Yes (Other)
  Sender: ROCHE
  Company Number: US-ROCHE-10000197182

PATIENT
  Age: 70 Year
  Sex: Female

DRUGS (1)
  1. ALECENSA [Suspect]
     Active Substance: ALECTINIB HYDROCHLORIDE
     Indication: Non-small cell lung cancer
     Route: 065
     Dates: start: 202202

REACTIONS (4)
  - Cerebral haemorrhage [Unknown]
  - Impaired driving ability [Unknown]
  - Seizure [Unknown]
  - Hypotension [Unknown]

NARRATIVE: CASE EVENT DATE: 20220401
